FAERS Safety Report 6133697-9 (Version None)
Quarter: 2009Q1

REPORT INFORMATION
  Report Type: 
  Country: None (occurrence: None)
  Receive Date: 20090326
  Receipt Date: 20090319
  Transmission Date: 20090719
  Serious: Yes (Other)
  Sender: FDA-Public Use
  Company Number: B0565696A

PATIENT
  Age: 50 Year
  Sex: Female

DRUGS (1)
  1. PAROXETINE HCL [Suspect]
     Indication: DEPRESSION
     Route: 048
     Dates: start: 20080401, end: 20081201

REACTIONS (7)
  - ABDOMINAL PAIN UPPER [None]
  - ANXIETY [None]
  - DIARRHOEA [None]
  - HALLUCINATION [None]
  - NAUSEA [None]
  - SUICIDAL IDEATION [None]
  - WITHDRAWAL SYNDROME [None]
